FAERS Safety Report 5434316-7 (Version None)
Quarter: 2007Q3

REPORT INFORMATION
  Report Type: 
  Country: None (occurrence: None)
  Receive Date: 20070831
  Receipt Date: 20070823
  Transmission Date: 20080115
  Serious: Yes (Hospitalization, Other)
  Sender: FDA-Public Use
  Company Number: US-BAYER-200710595BWH

PATIENT
  Age: 66 Year
  Sex: Female
  Weight: 83 kg

DRUGS (10)
  1. NEXAVAR [Suspect]
     Indication: METASTATIC RENAL CELL CARCINOMA
     Dosage: TOTAL DAILY DOSE: 400 MG  UNIT DOSE: 200 MG
     Route: 048
     Dates: start: 20060804, end: 20070115
  2. NEXAVAR [Suspect]
     Dosage: TOTAL DAILY DOSE: 400 MG  UNIT DOSE: 200 MG
     Route: 048
     Dates: start: 20070220
  3. AMARYL [Concomitant]
  4. ASPIRIN [Concomitant]
  5. MULTI-VITAMIN [Concomitant]
  6. COZAAR [Concomitant]
  7. GLUCOPHAGE [Concomitant]
     Dosage: TOTAL DAILY DOSE: 2000 MG
  8. LASIX [Concomitant]
  9. TRICOR [Concomitant]
  10. ZOCOR [Concomitant]

REACTIONS (9)
  - ASCITES [None]
  - DYSPNOEA [None]
  - GENERALISED OEDEMA [None]
  - HYPERKALAEMIA [None]
  - MYOCARDIAL INFARCTION [None]
  - NEPHROTIC SYNDROME [None]
  - RASH [None]
  - TROPONIN INCREASED [None]
  - WEIGHT INCREASED [None]
